FAERS Safety Report 18557234 (Version 1)
Quarter: 2020Q4

REPORT INFORMATION
  Report Type: Spontaneous
  Country: US (occurrence: US)
  Receive Date: 20201129
  Receipt Date: 20201129
  Transmission Date: 20210114
  Serious: No
  Sender: FDA-Public Use
  Company Number: US-ABBVIE-20K-163-3599045-00

PATIENT
  Age: 46 Year
  Sex: Female
  Weight: 84.9 kg

DRUGS (3)
  1. FLUTICASONE. [Suspect]
     Active Substance: FLUTICASONE
     Indication: NASAL CONGESTION
     Route: 065
     Dates: start: 20200930
  2. ORIAHNN [Suspect]
     Active Substance: ELAGOLIX SODIUM\ESTRADIOL\NORETHINDRONE
     Indication: UTERINE LEIOMYOMA
     Dosage: 1 IN 1 DAY (AM)
     Route: 048
     Dates: start: 20200928, end: 20201002
  3. ORIAHNN [Suspect]
     Active Substance: ELAGOLIX SODIUM\ESTRADIOL\NORETHINDRONE
     Indication: UTERINE LEIOMYOMA
     Dosage: 1 IN 1 DAY (PM)
     Route: 048
     Dates: start: 20200928, end: 20201002

REACTIONS (4)
  - Allergic oedema [Recovering/Resolving]
  - Dilated pores [Recovering/Resolving]
  - Dermatitis allergic [Recovering/Resolving]
  - Otorrhoea [Recovering/Resolving]

NARRATIVE: CASE EVENT DATE: 20201001
